FAERS Safety Report 7767770-6 (Version None)
Quarter: 2011Q3

REPORT INFORMATION
  Report Type: 
  Country: None (occurrence: None)
  Receive Date: 20110922
  Receipt Date: 20110310
  Transmission Date: 20111222
  Serious: No
  Sender: FDA-Public Use
  Company Number: US-ASTRAZENECA-2011SE13570

PATIENT
  Age: 72 Year
  Sex: Female
  Weight: 58.1 kg

DRUGS (5)
  1. SEROQUEL [Suspect]
     Indication: ANTIDEPRESSANT THERAPY
     Route: 048
  2. BENZEPRIL [Concomitant]
     Indication: HYPERTENSION
  3. AMLODIPINE [Concomitant]
     Indication: HYPERTENSION
  4. CLONIDINE HCL [Concomitant]
     Indication: HYPERTENSION
  5. CERVITALOL [Concomitant]
     Indication: HYPERTENSION

REACTIONS (2)
  - FEAR [None]
  - MENTAL DISORDER [None]
